FAERS Safety Report 9838616 (Version 1)
Quarter: 2013Q4

REPORT INFORMATION
  Report Type: Spontaneous
  Country: US (occurrence: None)
  Receive Date: 20131206
  Receipt Date: 20131206
  Transmission Date: 20140711
  Serious: Yes (Other)
  Sender: FDA-Public Use
  Company Number: 384267

PATIENT
  Age: 59 Year
  Sex: Male

DRUGS (2)
  1. NOVOLOG [Suspect]
     Indication: TYPE 2 DIABETES MELLITUS
     Dosage: QD IN AM, SUBCUT
     Route: 058
     Dates: start: 1998, end: 201306
  2. HUMULIN N [Suspect]
     Route: 058

REACTIONS (1)
  - Blood glucose increased [None]
